FAERS Safety Report 5113535-3 (Version None)
Quarter: 2006Q3

REPORT INFORMATION
  Report Type: 
  Country: None (occurrence: None)
  Receive Date: 20060921
  Receipt Date: 20060921
  Transmission Date: 20061208
  Serious: Yes (Hospitalization)
  Sender: FDA-Public Use
  Company Number: None

PATIENT
  Age: 42 Year
  Sex: Female
  Weight: 44.6 kg

DRUGS (5)
  1. CLONIDINE [Suspect]
     Indication: HYPERTENSION
     Dosage: 0.3MG PO TID
     Route: 048
  2. MINOXIDIL [Suspect]
     Indication: HYPERTENSION
     Dosage: 2.5MG PO QD
     Route: 048
  3. CAPTOPRIL [Suspect]
     Indication: HYPERTENSION
     Dosage: 75MG PO TID
     Route: 048
  4. DILTIAZEM HCL [Suspect]
     Indication: HYPERTENSION
     Dosage: 60MG PO Q 6H
     Route: 048
  5. QUETIAPRINE [Concomitant]

REACTIONS (2)
  - HYPERTENSION [None]
  - TREATMENT NONCOMPLIANCE [None]
